FAERS Safety Report 15268711 (Version 2)
Quarter: 2018Q3

REPORT INFORMATION
  Report Type: Spontaneous
  Country: US (occurrence: US)
  Receive Date: 20180813
  Receipt Date: 20180824
  Transmission Date: 20181010
  Serious: No
  Sender: FDA-Public Use
  Company Number: US-AMGEN-USASP2018110048

PATIENT
  Age: 33 Year
  Sex: Female

DRUGS (2)
  1. ENBREL [Suspect]
     Active Substance: ETANERCEPT
     Indication: PRODUCT USED FOR UNKNOWN INDICATION
     Dosage: UNK
     Route: 065
     Dates: start: 20180719, end: 2018
  2. PREDNISONE. [Concomitant]
     Active Substance: PREDNISONE
     Dosage: UNK

REACTIONS (1)
  - Injection site urticaria [Unknown]

NARRATIVE: CASE EVENT DATE: 20180719
